FAERS Safety Report 10265776 (Version 1)
Quarter: 2014Q2

REPORT INFORMATION
  Report Type: Spontaneous
  Country: US (occurrence: US)
  Receive Date: 20140627
  Receipt Date: 20140627
  Transmission Date: 20141212
  Serious: Yes (Other)
  Sender: FDA-Public Use
  Company Number: US-BAYER-2014-095301

PATIENT
  Age: 30 Year
  Sex: Female
  Weight: 86 kg

DRUGS (7)
  1. YASMIN [Suspect]
     Indication: MIGRAINE
  2. ZOLPIDEM [Concomitant]
     Dosage: 10 MG, UNK
  3. AMBIEN [Concomitant]
     Dosage: 10 MG, UNK
  4. PRENATAL VITAMINS [VIT C,B5,B12,D2,B3,B6,RETINOL PALMIT,B2,B1 MONO [Concomitant]
  5. HYDROCODONE/ACETAMINOPHEN [Concomitant]
     Dosage: 7.5/750 MG
  6. AMOXICILLIN [Concomitant]
     Dosage: 500 MG, UNK
  7. DOXYCYCLINE [Concomitant]
     Dosage: 100 MG, UNK

REACTIONS (2)
  - Pulmonary embolism [Recovering/Resolving]
  - Cholelithiasis [None]
